FAERS Safety Report 8368581-3 (Version None)
Quarter: 2012Q2

REPORT INFORMATION
  Report Type: 
  Country: None (occurrence: None)
  Receive Date: 20120518
  Receipt Date: 20120508
  Transmission Date: 20120825
  Serious: No
  Sender: FDA-Public Use
  Company Number: US-BIOGENIDEC-2012BI001629

PATIENT
  Sex: Female

DRUGS (2)
  1. AVONEX [Concomitant]
     Indication: MULTIPLE SCLEROSIS
     Route: 030
     Dates: start: 20000601
  2. TYSABRI [Suspect]
     Indication: MULTIPLE SCLEROSIS
     Route: 042
     Dates: start: 20111003, end: 20120105

REACTIONS (6)
  - COGNITIVE DISORDER [None]
  - DEPRESSION [None]
  - GAIT DISTURBANCE [None]
  - FALL [None]
  - INJURY [None]
  - MULTIPLE SCLEROSIS [None]
